FAERS Safety Report 25689531 (Version 3)
Quarter: 2025Q4

REPORT INFORMATION
  Report Type: Spontaneous
  Country: US (occurrence: US)
  Receive Date: 20250818
  Receipt Date: 20251013
  Transmission Date: 20260118
  Serious: Yes (Other)
  Sender: VIIV
  Company Number: US-VIIV HEALTHCARE-US2025AMR105745

PATIENT
  Weight: 88.5 kg

DRUGS (1)
  1. DOVATO [Suspect]
     Active Substance: DOLUTEGRAVIR SODIUM\LAMIVUDINE
     Indication: HIV infection
     Dosage: UNK

REACTIONS (2)
  - Virologic failure [Recovered/Resolved]
  - Pathogen resistance [Recovered/Resolved]
